FAERS Safety Report 5736174-X (Version None)
Quarter: 2008Q2

REPORT INFORMATION
  Report Type: 
  Country: None (occurrence: None)
  Receive Date: 20080509
  Receipt Date: 20080509
  Transmission Date: 20081010
  Serious: Yes (Other)
  Sender: FDA-Public Use
  Company Number: None

PATIENT
  Sex: Male
  Weight: 57.1532 kg

DRUGS (1)
  1. AVASTIN [Suspect]
     Indication: COLON CANCER METASTATIC
     Dosage: 5 MG/KG Q 2 OR 3 WEEKS IV; 06/2006-PRESENT (SOME BREAKS)
     Route: 042
     Dates: start: 20060601

REACTIONS (1)
  - OSTEORADIONECROSIS [None]
